FAERS Safety Report 15749385 (Version 1)
Quarter: 2018Q4

REPORT INFORMATION
  Report Type: Spontaneous
  Country: US (occurrence: US)
  Receive Date: 20181220
  Receipt Date: 20181220
  Transmission Date: 20190205
  Serious: Yes (Disabling)
  Sender: FDA-Public Use
  Company Number: None

PATIENT
  Age: 15 Year
  Sex: Male
  Weight: 58 kg

DRUGS (4)
  1. CLOBETASOL [Concomitant]
     Active Substance: CLOBETASOL
     Dates: start: 20170101, end: 20181220
  2. XOLAIR [Suspect]
     Active Substance: OMALIZUMAB
     Indication: ECZEMA
     Dosage: ?          OTHER FREQUENCY:EVERY TWO WEEKS.;?
     Route: 058
     Dates: start: 20170914, end: 20181220
  3. XOLAIR [Suspect]
     Active Substance: OMALIZUMAB
     Indication: ASTHMA
     Dosage: ?          OTHER FREQUENCY:EVERY TWO WEEKS.;?
     Route: 058
     Dates: start: 20170914, end: 20181220
  4. RASUVO [Concomitant]
     Active Substance: METHOTREXATE SODIUM
     Dates: start: 20170101, end: 20181220

REACTIONS (1)
  - Alopecia [None]

NARRATIVE: CASE EVENT DATE: 20180401
